FAERS Safety Report 6032675-8 (Version None)
Quarter: 2008Q4

REPORT INFORMATION
  Report Type: 
  Country: None (occurrence: None)
  Receive Date: 20081224
  Receipt Date: 20081023
  Transmission Date: 20090506
  Serious: No
  Sender: FDA-Public Use
  Company Number: 2008PV036973

PATIENT
  Age: 65 Year
  Sex: Female

DRUGS (14)
  1. SYMLIN [Suspect]
     Indication: TYPE 2 DIABETES MELLITUS
     Dosage: 60 MCG; ;SC
     Route: 058
     Dates: start: 20081021
  2. SYMLIN [Suspect]
     Indication: TYPE 2 DIABETES MELLITUS
     Dosage: 45 MCG; ;SC; 30 MCG; ;SC; 15 MCG; ;SC
     Route: 058
     Dates: start: 20081015, end: 20081016
  3. SYMLIN [Suspect]
     Indication: TYPE 2 DIABETES MELLITUS
     Dosage: 45 MCG; ;SC; 30 MCG; ;SC; 15 MCG; ;SC
     Route: 058
     Dates: start: 20081017, end: 20081018
  4. SYMLIN [Suspect]
     Indication: TYPE 2 DIABETES MELLITUS
     Dosage: 45 MCG; ;SC; 30 MCG; ;SC; 15 MCG; ;SC
     Route: 058
     Dates: start: 20081019, end: 20081020
  5. GLUCOPHAGE [Concomitant]
  6. ACTOPLUS MET 850/50 [Concomitant]
  7. SYNTHROID [Concomitant]
  8. DIOVAN [Concomitant]
  9. HYDROCHLOROTHIAZIDE [Concomitant]
  10. BYETTA [Concomitant]
  11. VITAMIN B COMPLEX CAP [Concomitant]
  12. MULTI-VITAMINS [Concomitant]
  13. LASIX [Concomitant]
  14. ASPIRIN [Concomitant]

REACTIONS (1)
  - BLOOD GLUCOSE INCREASED [None]
